FAERS Safety Report 18248676 (Version 1)
Quarter: 2020Q3

REPORT INFORMATION
  Report Type: Spontaneous
  Country: US (occurrence: US)
  Receive Date: 20200909
  Receipt Date: 20200909
  Transmission Date: 20201103
  Serious: No
  Sender: FDA-Public Use
  Company Number: US-AMERICAN REGENT INC-2020000092

PATIENT
  Sex: Female

DRUGS (2)
  1. INJECTAFER [Suspect]
     Active Substance: FERRIC CARBOXYMALTOSE
     Indication: IRON DEFICIENCY ANAEMIA
     Dosage: 750 MILLIGRAM
     Route: 042
     Dates: start: 2019, end: 2019
  2. INJECTAFER [Suspect]
     Active Substance: FERRIC CARBOXYMALTOSE
     Indication: UTERINE HAEMORRHAGE
     Dosage: 750 MILLIGRAM
     Route: 042
     Dates: start: 2019, end: 2019

REACTIONS (2)
  - Vertigo [Recovering/Resolving]
  - Hepatic enzyme abnormal [Recovering/Resolving]
